FAERS Safety Report 15136119 (Version 6)
Quarter: 2020Q3

REPORT INFORMATION
  Report Type: Spontaneous
  Country: US (occurrence: US)
  Receive Date: 20180712
  Receipt Date: 20200904
  Transmission Date: 20201102
  Serious: Yes (Hospitalization, Other)
  Sender: FDA-Public Use
  Company Number: US-PFIZER INC-2018277882

PATIENT
  Age: 61 Year
  Sex: Female
  Weight: 68.04 kg

DRUGS (13)
  1. LEVOXYL [Concomitant]
     Active Substance: LEVOTHYROXINE SODIUM
     Dosage: 150 MG, 1X/DAY
     Dates: start: 1998
  2. FLEXERIL [Concomitant]
     Active Substance: CYCLOBENZAPRINE HYDROCHLORIDE
     Indication: NECK PAIN
     Dosage: UNK, 1X/DAY
     Dates: start: 2009, end: 20170901
  3. WELLBUTRIN [Concomitant]
     Active Substance: BUPROPION HYDROCHLORIDE
     Indication: WEIGHT DECREASED
     Dosage: 150 MG, 1X/DAY
     Dates: start: 2013
  4. VYVANSE [Concomitant]
     Active Substance: LISDEXAMFETAMINE DIMESYLATE
     Dosage: UNK
     Dates: start: 20170901
  5. LYRICA [Suspect]
     Active Substance: PREGABALIN
     Indication: POST CONCUSSION SYNDROME
     Dosage: 50 MG, 2X/DAY
     Route: 048
     Dates: start: 20170901
  6. TRAMADOL. [Concomitant]
     Active Substance: TRAMADOL
     Dosage: UNK
     Dates: start: 20170630
  7. IBUPROFEN. [Concomitant]
     Active Substance: IBUPROFEN
     Indication: INFLAMMATION
     Dosage: 600 MG, 2X/DAY
     Dates: start: 20180611
  8. LYRICA [Suspect]
     Active Substance: PREGABALIN
     Indication: INTERVERTEBRAL DISC PROTRUSION
     Dosage: 75 MG, UNK
     Dates: end: 20181011
  9. VYVANSE [Concomitant]
     Active Substance: LISDEXAMFETAMINE DIMESYLATE
     Indication: POST CONCUSSION SYNDROME
     Dosage: 70 MG, DAILY (40MG BY MOUTH IN THE MORNING AND 30 MG AT NOON)
     Route: 048
     Dates: start: 201708
  10. TRAMADOL. [Concomitant]
     Active Substance: TRAMADOL
     Indication: PAIN
     Dosage: 50 MG, AS NEEDED (50 MG ONCE OR TWICE A DAY AS NEEDED)
     Dates: start: 201707
  11. IBUPROFEN. [Concomitant]
     Active Substance: IBUPROFEN
     Indication: PAIN
     Dosage: UNK
     Dates: start: 2009
  12. WELLBUTRIN [Concomitant]
     Active Substance: BUPROPION HYDROCHLORIDE
     Indication: POST CONCUSSION SYNDROME
  13. LEVOXYL [Concomitant]
     Active Substance: LEVOTHYROXINE SODIUM
     Indication: HYPOTHYROIDISM
     Dosage: UNK
     Dates: start: 1997

REACTIONS (15)
  - Anger [Recovered/Resolved]
  - Feeling abnormal [Unknown]
  - Lumbar vertebral fracture [Recovered/Resolved]
  - Pain [Recovered/Resolved]
  - Condition aggravated [Recovered/Resolved]
  - Fall [Recovered/Resolved]
  - Condition aggravated [Recovered/Resolved]
  - Product dose omission issue [Unknown]
  - Syncope [Recovered/Resolved]
  - Depression [Recovered/Resolved]
  - Asthenia [Unknown]
  - Social problem [Unknown]
  - Vomiting [Recovered/Resolved]
  - Sternal fracture [Recovered/Resolved]
  - Food poisoning [Recovered/Resolved]

NARRATIVE: CASE EVENT DATE: 20180611
